FAERS Safety Report 10483134 (Version 2)
Quarter: 2014Q3

REPORT INFORMATION
  Report Type: Report from Study
  Country: US (occurrence: US)
  Receive Date: 20140930
  Receipt Date: 20140930
  Transmission Date: 20150326
  Serious: Yes (Other)
  Sender: FDA-Public Use
  Company Number: US-ACCORD-026106

PATIENT
  Sex: Male

DRUGS (1)
  1. MITOMYCIN. [Suspect]
     Active Substance: MITOMYCIN
     Indication: BLADDER NECK OBSTRUCTION
     Route: 026

REACTIONS (3)
  - Off label use [Unknown]
  - Bladder pain [Recovered/Resolved]
  - Bladder necrosis [Recovered/Resolved]
